FAERS Safety Report 22198438 (Version 1)
Quarter: 2023Q2

REPORT INFORMATION
  Report Type: Spontaneous
  Country: DE (occurrence: DE)
  Receive Date: 20230411
  Receipt Date: 20230411
  Transmission Date: 20230721
  Serious: Yes (Hospitalization, Disabling, Other)
  Sender: FDA-Public Use
  Company Number: DE-AMGEN-DEUSP2023058425

PATIENT
  Age: 66 Year
  Sex: Female
  Weight: 60.5 kg

DRUGS (5)
  1. REPATHA [Suspect]
     Active Substance: EVOLOCUMAB
     Indication: Product used for unknown indication
     Dosage: UNK
     Route: 065
     Dates: start: 201702
  2. COMIRNATY [Suspect]
     Active Substance: TOZINAMERAN
     Indication: COVID-19 immunisation
     Dosage: UNK
     Route: 030
     Dates: start: 20210618, end: 20210618
  3. COMIRNATY [Suspect]
     Active Substance: TOZINAMERAN
     Dosage: UNK
     Route: 030
     Dates: start: 20210721, end: 20210721
  4. ASPIRIN [Concomitant]
     Active Substance: ASPIRIN
     Indication: Coronary artery disease
     Dosage: UNK
     Route: 048
  5. BISOPROLOL [Concomitant]
     Active Substance: BISOPROLOL
     Indication: Coronary artery disease
     Dosage: UNK
     Route: 048

REACTIONS (18)
  - Dyspnoea [Recovered/Resolved with Sequelae]
  - Coronary artery disease [Recovered/Resolved with Sequelae]
  - Pyrexia [Recovered/Resolved with Sequelae]
  - Migraine [Not Recovered/Not Resolved]
  - Myocardial infarction [Unknown]
  - Carotid arteriosclerosis [Unknown]
  - Retinal artery occlusion [Unknown]
  - Coronary artery occlusion [Unknown]
  - Hypertensive crisis [Unknown]
  - Chills [Recovered/Resolved with Sequelae]
  - Drug intolerance [Unknown]
  - Hypercalcaemia [Unknown]
  - Peripheral arterial occlusive disease [Unknown]
  - Aneurysm [Unknown]
  - Vertigo [Unknown]
  - Blood pressure abnormal [Unknown]
  - Dizziness [Unknown]
  - Hypertension [Unknown]

NARRATIVE: CASE EVENT DATE: 20210101
